FAERS Safety Report 6220650-X (Version None)
Quarter: 2009Q2

REPORT INFORMATION
  Report Type: 
  Country: None (occurrence: None)
  Receive Date: 20090610
  Receipt Date: 20090605
  Transmission Date: 20091009
  Serious: Yes (Death, Hospitalization)
  Sender: FDA-Public Use
  Company Number: IT-ROCHE-636619

PATIENT
  Sex: Female
  Weight: 80 kg

DRUGS (3)
  1. CAPECITABINE [Suspect]
     Dosage: FORM: CPR, DOSE 1800 MG/ KG 2500 MG
     Route: 048
     Dates: start: 20090428, end: 20090518
  2. BEVACIZUMAB [Suspect]
     Dosage: FORM: VIAL
     Route: 042
     Dates: start: 20090428, end: 20090518
  3. DOCETAXEL [Suspect]
     Dosage: FORM: VIAL
     Route: 042
     Dates: start: 20090428, end: 20090518

REACTIONS (8)
  - ALANINE AMINOTRANSFERASE INCREASED [None]
  - ASPARTATE AMINOTRANSFERASE INCREASED [None]
  - BLOOD AMYLASE INCREASED [None]
  - BLOOD CHOLINESTERASE INCREASED [None]
  - CIRCULATORY COLLAPSE [None]
  - HYPOTENSION [None]
  - RENAL FAILURE [None]
  - SEPTIC SHOCK [None]
